FAERS Safety Report 9773028 (Version 2)
Quarter: 2014Q1

REPORT INFORMATION
  Report Type: Spontaneous
  Country: US (occurrence: US)
  Receive Date: 20131219
  Receipt Date: 20140214
  Transmission Date: 20141002
  Serious: No
  Sender: FDA-Public Use
  Company Number: US-B.I. PHARMACEUTICALS,INC./RIDGEFIELD-2013-BI-41130BP

PATIENT
  Age: 61 Year
  Sex: Male
  Weight: 73 kg

DRUGS (11)
  1. SPIRIVA [Suspect]
     Indication: CHRONIC OBSTRUCTIVE PULMONARY DISEASE
     Dosage: 18 MCG
     Route: 055
     Dates: start: 201304
  2. METOPROLOL XR [Concomitant]
     Indication: HYPERTENSION
     Dosage: 50 MG
     Route: 048
     Dates: start: 2005
  3. LORATADINE [Concomitant]
     Indication: HYPERSENSITIVITY
     Dosage: 10 MG
     Route: 048
     Dates: start: 2008
  4. NITROGLYCERIN [Concomitant]
     Indication: CHEST PAIN
     Dates: start: 2008
  5. ASPIRIN [Concomitant]
     Indication: CARDIAC DISORDER
     Dosage: 81 MG
     Route: 048
     Dates: start: 2008
  6. FENTANYL [Concomitant]
     Indication: PAIN
     Dosage: FORMULATION: PATCH
     Route: 058
     Dates: start: 201303
  7. OMEPRAZOLE [Concomitant]
     Indication: GASTROOESOPHAGEAL REFLUX DISEASE
     Dosage: 20 MG
     Route: 048
     Dates: start: 2008
  8. NORCO [Concomitant]
     Indication: PAIN
     Dosage: STRENGTH: 325MG/10MG; DAILY DOSE: 2050MG/60MG
     Route: 048
     Dates: start: 2008
  9. LISINOPRIL/ HCTZ [Concomitant]
     Indication: HYPERTENSION
     Dosage: STRENGTH: 20MG/12.5MG; DAILY DOSE: 20MG/12.5MG
     Route: 048
     Dates: start: 2005
  10. MTRAZIPNE [Concomitant]
     Indication: SLEEP DISORDER
     Dosage: 30 MG
     Route: 048
     Dates: start: 2012
  11. ADVAIR [Concomitant]
     Indication: CHRONIC OBSTRUCTIVE PULMONARY DISEASE
     Dosage: STRENGTH: 250MCG/50MCG; DAILY DOSE: 250MCG/50MCG
     Route: 055
     Dates: start: 2008

REACTIONS (5)
  - Dyspnoea [Not Recovered/Not Resolved]
  - Increased upper airway secretion [Not Recovered/Not Resolved]
  - Product quality issue [Not Recovered/Not Resolved]
  - Product quality issue [Not Recovered/Not Resolved]
  - Product quality issue [Not Recovered/Not Resolved]
